FAERS Safety Report 10477784 (Version 4)
Quarter: 2014Q4

REPORT INFORMATION
  Report Type: Spontaneous
  Country: IN (occurrence: IN)
  Receive Date: 20140926
  Receipt Date: 20141106
  Transmission Date: 20150528
  Serious: Yes (Death)
  Sender: FDA-Public Use
  Company Number: IN-009507513-1409IND012503

PATIENT

DRUGS (1)
  1. NOXAFIL [Suspect]
     Active Substance: POSACONAZOLE
     Dosage: UNK
     Route: 048

REACTIONS (2)
  - Ventricular tachycardia [Fatal]
  - Ventricular arrhythmia [Fatal]

NARRATIVE: CASE EVENT DATE: 2014
